FAERS Safety Report 22373671 (Version 1)
Quarter: 2023Q2

REPORT INFORMATION
  Report Type: Spontaneous
  Country: US (occurrence: None)
  Receive Date: 20230526
  Receipt Date: 20230526
  Transmission Date: 20230722
  Serious: Yes (Hospitalization)
  Sender: FDA-Public Use
  Company Number: None

PATIENT
  Sex: Female

DRUGS (1)
  1. SOLU-CORTEF [Suspect]
     Active Substance: HYDROCORTISONE SODIUM SUCCINATE
     Indication: Impaired gastric emptying
     Dosage: FREQUENCY : EVERY 12 HOURS;?OTHER ROUTE : JEJUNOSTOMY J TUBE;?PLACE 20 MG (0.4ML) INTO THE JEJUNOSTO
     Route: 050
     Dates: start: 20201014

REACTIONS (2)
  - Asthma [None]
  - Skin laceration [None]
